FAERS Safety Report 24700334 (Version 1)
Quarter: 2024Q4

REPORT INFORMATION
  Report Type: Spontaneous
  Country: IN (occurrence: IN)
  Receive Date: 20241205
  Receipt Date: 20241205
  Transmission Date: 20250114
  Serious: No
  Sender: ALKEM
  Company Number: IN-ALKEM LABORATORIES LIMITED-IN-ALKEM-2024-10243

PATIENT

DRUGS (2)
  1. METFORMIN HYDROCHLORIDE [Suspect]
     Active Substance: METFORMIN HYDROCHLORIDE
     Indication: Type 2 diabetes mellitus
     Dosage: UNK, (EQUAL OR GREATER THAN 1 G/DAY)
     Route: 065
  2. EVOGLIPTIN [Suspect]
     Active Substance: EVOGLIPTIN
     Indication: Type 2 diabetes mellitus
     Dosage: 5 MILLIGRAM, OD
     Route: 065

REACTIONS (2)
  - Urinary tract infection [Unknown]
  - Drug ineffective [Unknown]
